FAERS Safety Report 15685655 (Version 1)
Quarter: 2018Q4

REPORT INFORMATION
  Report Type: Spontaneous
  Country: US (occurrence: US)
  Receive Date: 20181204
  Receipt Date: 20181204
  Transmission Date: 20190205
  Serious: No
  Sender: FDA-Public Use
  Company Number: US-BRISTOL-MYERS SQUIBB COMPANY-BMS-2018-112926

PATIENT
  Sex: Female

DRUGS (2)
  1. ELIQUIS [Suspect]
     Active Substance: APIXABAN
     Indication: PRODUCT USED FOR UNKNOWN INDICATION
     Dosage: 5 MG, BID
     Route: 065
  2. ELIQUIS [Suspect]
     Active Substance: APIXABAN
     Indication: DEEP VEIN THROMBOSIS
     Dosage: 5 MG, QD
     Route: 065
     Dates: start: 201811

REACTIONS (16)
  - Eye swelling [Unknown]
  - Cough [Unknown]
  - Swelling [Unknown]
  - Fatigue [Unknown]
  - Decreased appetite [Unknown]
  - Intentional product misuse [Unknown]
  - Rash [Unknown]
  - Dyspnoea [Unknown]
  - Chest pain [Unknown]
  - Palpitations [Unknown]
  - Insomnia [Unknown]
  - Dizziness [Unknown]
  - Gait disturbance [Unknown]
  - Hypersensitivity [Unknown]
  - Headache [Unknown]
  - Prescribed underdose [Unknown]
